FAERS Safety Report 5316477-3 (Version None)
Quarter: 2007Q2

REPORT INFORMATION
  Report Type: 
  Country: None (occurrence: None)
  Receive Date: 20070430
  Receipt Date: 20070417
  Transmission Date: 20071010
  Serious: Yes (Hospitalization)
  Sender: FDA-Public Use
  Company Number: 16356

PATIENT
  Age: 60 Year
  Sex: Male

DRUGS (8)
  1. METHYLENE BLUE [Suspect]
     Dosage: 5 MG/KG IV
     Route: 042
     Dates: start: 20030724, end: 20030724
  2. DOLASETRON [Concomitant]
  3. FENTANYL [Concomitant]
  4. GLYCOPYRROLATE [Concomitant]
  5. KETOROLAC TROMETHAMINE [Concomitant]
  6. MIDAZOLAM HCL [Concomitant]
  7. MIVACURIUM [Concomitant]
  8. PROPOFOL [Concomitant]

REACTIONS (6)
  - APHASIA [None]
  - CONFUSIONAL STATE [None]
  - ENCEPHALOPATHY [None]
  - LETHARGY [None]
  - POST PROCEDURAL COMPLICATION [None]
  - VERTIGO [None]
